FAERS Safety Report 9350173 (Version 2)
Quarter: 2016Q1

REPORT INFORMATION
  Report Type: Report from Study
  Country: US (occurrence: US)
  Receive Date: 20130617
  Receipt Date: 20160216
  Transmission Date: 20160526
  Serious: Yes (Other)
  Sender: FDA-Public Use
  Company Number: US-ROCHE-1236342

PATIENT
  Sex: Female

DRUGS (8)
  1. BENADRYL [Concomitant]
     Active Substance: DIPHENHYDRAMINE HYDROCHLORIDE
     Route: 065
  2. COPEGUS [Suspect]
     Active Substance: RIBAVIRIN
     Indication: HEPATITIS C
     Route: 048
  3. LACTULOSE. [Concomitant]
     Active Substance: LACTULOSE
     Route: 048
  4. TELAPREVIR [Suspect]
     Active Substance: TELAPREVIR
     Indication: HEPATITIS C
     Route: 065
  5. PEGASYS [Suspect]
     Active Substance: PEGINTERFERON ALFA-2A
     Indication: HEPATITIS C
     Route: 058
  6. PRILOSEC [Concomitant]
     Active Substance: OMEPRAZOLE MAGNESIUM
     Route: 048
  7. ALDACTONE [Concomitant]
     Active Substance: SPIRONOLACTONE
     Route: 048
  8. LASIX [Concomitant]
     Active Substance: FUROSEMIDE
     Route: 048

REACTIONS (4)
  - Insomnia [Unknown]
  - Neoplasm malignant [Not Recovered/Not Resolved]
  - Pruritus [Unknown]
  - Anaemia [Not Recovered/Not Resolved]
